FAERS Safety Report 19936170 (Version 1)
Quarter: 2021Q4

REPORT INFORMATION
  Report Type: Spontaneous
  Country: US (occurrence: US)
  Receive Date: 20211009
  Receipt Date: 20211009
  Transmission Date: 20220303
  Serious: Yes (Other)
  Sender: FDA-Public Use
  Company Number: US-TARO-2021TAR01034

PATIENT
  Age: 66 Year
  Sex: Male

DRUGS (2)
  1. WARFARIN [Suspect]
     Active Substance: WARFARIN
     Indication: Product used for unknown indication
     Dosage: UNK, CHRONIC THERAPY
     Route: 065
  2. WARFARIN [Suspect]
     Active Substance: WARFARIN
     Dosage: UNK, RESTATED AT LOWER THERAPEUTIC GOAL
     Route: 065

REACTIONS (2)
  - Acute kidney injury [Recovering/Resolving]
  - Anticoagulant-related nephropathy [Recovering/Resolving]
